FAERS Safety Report 15972663 (Version 2)
Quarter: 2019Q1

REPORT INFORMATION
  Report Type: Spontaneous
  Country: GB (occurrence: GB)
  Receive Date: 20190216
  Receipt Date: 20190227
  Transmission Date: 20190418
  Serious: Yes (Hospitalization)
  Sender: FDA-Public Use
  Company Number: GB-ACCORD-107339

PATIENT
  Age: 83 Year
  Sex: Female

DRUGS (12)
  1. CO-CODAMOL ACTAVIS GROUP PTC [Concomitant]
  2. ALENDRONATE SODIUM/ALENDRONIC ACID [Concomitant]
  3. AMLODIPINE [Concomitant]
     Active Substance: AMLODIPINE BESYLATE
  4. AMILORIDE [Concomitant]
     Active Substance: AMILORIDE
  5. FUROSEMIDE. [Suspect]
     Active Substance: FUROSEMIDE
     Indication: OEDEMA
     Route: 048
     Dates: end: 20170619
  6. NAPROXEN. [Suspect]
     Active Substance: NAPROXEN
     Indication: ANALGESIC INTERVENTION SUPPORTIVE THERAPY
     Route: 048
     Dates: end: 20180619
  7. LISINOPRIL. [Suspect]
     Active Substance: LISINOPRIL
     Indication: HYPERTENSION
     Route: 048
     Dates: end: 20180619
  8. ADCAL-D3 [Concomitant]
     Active Substance: CALCIUM CARBONATE\CHOLECALCIFEROL
  9. BUPRENORPHINE. [Concomitant]
     Active Substance: BUPRENORPHINE
  10. OMEPRAZOLE. [Concomitant]
     Active Substance: OMEPRAZOLE
  11. OXYCODONE [Concomitant]
     Active Substance: OXYCODONE
  12. COSMOCOL [Concomitant]

REACTIONS (1)
  - Acute kidney injury [Unknown]
